FAERS Safety Report 5006637-3 (Version None)
Quarter: 2006Q2

REPORT INFORMATION
  Report Type: 
  Country: None (occurrence: None)
  Receive Date: 20060516
  Receipt Date: 20060503
  Transmission Date: 20061013
  Serious: Yes (Other)
  Sender: FDA-Public Use
  Company Number: DE200605001119

PATIENT
  Age: 13 Year
  Sex: Female

DRUGS (2)
  1. STRATTERA [Suspect]
     Indication: ATTENTION DEFICIT/HYPERACTIVITY DISORDER
     Dosage: 40 MG, DAILY (1/D), ORAL
     Route: 048
     Dates: start: 20050401, end: 20060502
  2. MEDIKINET (METHYLPHENIDATE HYDROCHLORIDE) SLOW RELEASE CAPSULES [Concomitant]

REACTIONS (6)
  - EDUCATIONAL PROBLEM [None]
  - FRUSTRATION [None]
  - PARENT-CHILD PROBLEM [None]
  - SELF ESTEEM DECREASED [None]
  - SKIN LACERATION [None]
  - SUICIDE ATTEMPT [None]
